FAERS Safety Report 25840912 (Version 1)
Quarter: 2025Q3

REPORT INFORMATION
  Report Type: Spontaneous
  Country: US (occurrence: None)
  Receive Date: 20250924
  Receipt Date: 20250924
  Transmission Date: 20251020
  Serious: Yes (Hospitalization)
  Sender: FDA-CTU
  Company Number: None

PATIENT
  Age: 72 Year
  Sex: Male
  Weight: 129.23 kg

DRUGS (3)
  1. DARATUMUMAB\HYALURONIDASE-FIHJ [Suspect]
     Active Substance: DARATUMUMAB\HYALURONIDASE-FIHJ
     Dates: end: 20250403
  2. DEXAMETHASONE [Suspect]
     Active Substance: DEXAMETHASONE
     Dates: end: 20250425
  3. LENALIDOMIDE [Suspect]
     Active Substance: LENALIDOMIDE
     Dates: end: 20250424

REACTIONS (8)
  - Mental status changes [None]
  - Pyrexia [None]
  - Protein urine present [None]
  - Glucose urine present [None]
  - Urine ketone body present [None]
  - Blood urine present [None]
  - Sinusitis [None]
  - Sepsis [None]

NARRATIVE: CASE EVENT DATE: 20250525
